FAERS Safety Report 14920428 (Version 1)
Quarter: 2018Q2

REPORT INFORMATION
  Report Type: Spontaneous
  Country: DE (occurrence: DE)
  Receive Date: 20180521
  Receipt Date: 20180521
  Transmission Date: 20180711
  Serious: Yes (Other)
  Sender: FDA-Public Use
  Company Number: PHHY2018DE003144

PATIENT
  Sex: Female

DRUGS (1)
  1. ESTRAMON CONTI [Suspect]
     Active Substance: ESTRADIOL\NORETHINDRONE ACETATE
     Indication: PRODUCT USED FOR UNKNOWN INDICATION
     Dosage: 30/95 UG/24 HR
     Route: 065

REACTIONS (4)
  - Pain [Unknown]
  - Overdose [Unknown]
  - Wrong technique in product usage process [Unknown]
  - Haemorrhage [Unknown]
